FAERS Safety Report 22127734 (Version 2)
Quarter: 2023Q2

REPORT INFORMATION
  Report Type: Spontaneous
  Country: US (occurrence: US)
  Receive Date: 20230323
  Receipt Date: 20230516
  Transmission Date: 20230722
  Serious: No
  Sender: FDA-Public Use
  Company Number: US-TEVA-2023-US-2866235

PATIENT
  Age: 68 Year
  Sex: Female

DRUGS (8)
  1. TREPROSTINIL [Suspect]
     Active Substance: TREPROSTINIL
     Indication: Pulmonary arterial hypertension
     Dosage: 11 NG/KG/MIN
     Route: 042
     Dates: start: 20220325
  2. TREPROSTINIL [Suspect]
     Active Substance: TREPROSTINIL
     Dosage: 10 NG/KG/MIN
     Route: 042
     Dates: start: 202204, end: 20230417
  3. TREPROSTINIL [Suspect]
     Active Substance: TREPROSTINIL
     Indication: Pulmonary arterial hypertension
     Dosage: .75 MILLIGRAM DAILY;
     Route: 048
     Dates: start: 202304, end: 202304
  4. TREPROSTINIL [Suspect]
     Active Substance: TREPROSTINIL
     Route: 048
     Dates: start: 202304
  5. TREPROSTINIL [Suspect]
     Active Substance: TREPROSTINIL
     Route: 048
     Dates: start: 20230407
  6. ORENITRAM [Suspect]
     Active Substance: TREPROSTINIL
     Indication: Pulmonary arterial hypertension
     Route: 048
  7. ORENITRAM [Suspect]
     Active Substance: TREPROSTINIL
     Route: 048
  8. SILDENAFIL CITRATE [Concomitant]
     Active Substance: SILDENAFIL CITRATE
     Indication: Product used for unknown indication

REACTIONS (14)
  - Headache [Unknown]
  - Diarrhoea [Unknown]
  - Device malfunction [Unknown]
  - Injection site haemorrhage [Unknown]
  - Dizziness [Unknown]
  - Pallor [Unknown]
  - Lethargy [Unknown]
  - Feeling cold [Unknown]
  - Constipation [Unknown]
  - Weight increased [Unknown]
  - Insomnia [Unknown]
  - Asthenia [Unknown]
  - Dyspnoea exertional [Unknown]
  - Hot flush [Unknown]

NARRATIVE: CASE EVENT DATE: 20230401
